FAERS Safety Report 9516557 (Version 1)
Quarter: 2013Q1

REPORT INFORMATION
  Report Type: Spontaneous
  Country: US (occurrence: None)
  Receive Date: 20130305
  Receipt Date: 20130305
  Transmission Date: 20140127
  Serious: Yes (Hospitalization, Other)
  Sender: FDA-Public Use
  Company Number: 163-21880-12113825

PATIENT
  Age: 64 Year
  Sex: Female
  Weight: 68.49 kg

DRUGS (22)
  1. REVLIMID [Suspect]
     Indication: PLASMA CELL MYELOMA
     Dosage: 10MG, 21 IN 28 D, PO
     Route: 048
     Dates: start: 20120328
  2. CHOLESTYRAMINE (COLESTYRAMINE) [Concomitant]
  3. POTASSIUM CHLORIDE (POTASSIUM CHLORIDE) [Concomitant]
  4. AMBIEN (ZOLPIDEM TARTRATE) [Concomitant]
  5. ZOMETA (ZOLEDRONIC ACID) [Concomitant]
  6. WELLBUTRIN (BUPROPION HYDROCHLORIDE) [Concomitant]
  7. IMODIUM (LOPERAMIDE HYDROCHLORIDE) [Concomitant]
  8. MULTIVITAMIN (MULTIVITAMINS) [Concomitant]
  9. MELATONIN (MELATONIN) [Concomitant]
  10. VICODIN (VICODIN) [Concomitant]
  11. MELOXICAM (MELOXICAM) [Concomitant]
  12. VITAMIN D (ERGOCALCIFEROL) [Concomitant]
  13. CITRACAL (CALCIUM CITRATE) [Concomitant]
  14. MAGOX (MAGNESIUM OXIDE) [Concomitant]
  15. FISH OIL (FISH OIL) [Concomitant]
  16. GABAPENTIN (GABAPENTIN) [Concomitant]
  17. ATIVAN (LORAZEPAM) [Concomitant]
  18. OMEPRAZOLE (OMEPRAZOLE) [Concomitant]
  19. VALACYCLOVIR (VALACICLOVIR HYDROCHLORIDE) [Concomitant]
  20. LEVEMIR (INSULIN DETEMIR) [Concomitant]
  21. METFORMIN (METFORMIN) [Concomitant]
  22. AVAPRO (IRBESARTAN) [Concomitant]

REACTIONS (3)
  - Hypertension [None]
  - Nasopharyngitis [None]
  - Bronchitis [None]
